FAERS Safety Report 10264598 (Version 1)
Quarter: 2014Q2

REPORT INFORMATION
  Report Type: Report from Study
  Country: IN (occurrence: IN)
  Receive Date: 20140627
  Receipt Date: 20140627
  Transmission Date: 20141212
  Serious: Yes (Death)
  Sender: FDA-Public Use
  Company Number: PHHY2014IN078188

PATIENT
  Age: 56 Year
  Sex: Female
  Weight: 50 kg

DRUGS (1)
  1. AFINITOR [Suspect]
     Indication: PANCREATIC NEUROENDOCRINE TUMOUR
     Dosage: 10 MG, DAILY
     Route: 048
     Dates: start: 20140602

REACTIONS (3)
  - Death [Fatal]
  - Stomatitis [Unknown]
  - Decreased appetite [Unknown]
